FAERS Safety Report 8555723-X (Version None)
Quarter: 2012Q3

REPORT INFORMATION
  Report Type: 
  Country: None (occurrence: None)
  Receive Date: 20120801
  Receipt Date: 20120723
  Transmission Date: 20120928
  Serious: Yes (Hospitalization)
  Sender: FDA-Public Use
  Company Number: US-009507513-1207USA009924

PATIENT

DRUGS (7)
  1. GLIMEPIRIDE [Concomitant]
  2. CARVEDILOL [Concomitant]
  3. PERINDOPRIL ERBUMINE [Concomitant]
  4. ZOCOR [Suspect]
     Dosage: 80 MG, QD
     Route: 048
  5. METFORMIN HYDROCHLORIDE [Concomitant]
  6. ASPIRIN [Concomitant]
  7. CYANOCOBALAMIN [Concomitant]

REACTIONS (3)
  - HYPERKALAEMIA [None]
  - BLOOD CREATININE INCREASED [None]
  - RHABDOMYOLYSIS [None]
